FAERS Safety Report 5771510-X (Version None)
Quarter: 2008Q2

REPORT INFORMATION
  Report Type: 
  Country: None (occurrence: None)
  Receive Date: 20080612
  Receipt Date: 20080612
  Transmission Date: 20081010
  Serious: Yes (Other)
  Sender: FDA-Public Use
  Company Number: None

PATIENT
  Age: 43 Year
  Sex: Female
  Weight: 48.5349 kg

DRUGS (1)
  1. CHANTIX [Suspect]
     Indication: SMOKING CESSATION THERAPY
     Dosage: 1 DAILY FOR 3 DAYS PO, THEN 2 DALY
     Route: 048
     Dates: start: 20080321, end: 20080402

REACTIONS (10)
  - AGITATION [None]
  - BACK INJURY [None]
  - COGNITIVE DISORDER [None]
  - FEELING ABNORMAL [None]
  - GRAND MAL CONVULSION [None]
  - HALLUCINATION [None]
  - INSOMNIA [None]
  - MANIA [None]
  - MOVEMENT DISORDER [None]
  - RESPIRATORY ARREST [None]
